FAERS Safety Report 14885892 (Version 15)
Quarter: 2021Q3

REPORT INFORMATION
  Report Type: Other
  Country: DE (occurrence: DE)
  Receive Date: 20180512
  Receipt Date: 20210809
  Transmission Date: 20211014
  Serious: Yes (Other)
  Sender: FDA-Public Use
  Company Number: DE-ROCHE-2122874

PATIENT
  Age: 41 Year
  Sex: Male

DRUGS (7)
  1. OCREVUS [Suspect]
     Active Substance: OCRELIZUMAB
     Route: 042
     Dates: start: 20191104
  2. OCREVUS [Suspect]
     Active Substance: OCRELIZUMAB
     Dosage: DATE OF TREATMENT: 04/NOV/2019
     Route: 042
     Dates: start: 20190506
  3. OCREVUS [Suspect]
     Active Substance: OCRELIZUMAB
     Route: 042
     Dates: start: 20210614
  4. SILDENAFIL. [Concomitant]
     Active Substance: SILDENAFIL
  5. OCREVUS [Suspect]
     Active Substance: OCRELIZUMAB
     Indication: RELAPSING-REMITTING MULTIPLE SCLEROSIS
     Dosage: SECOND INFUSION ON 07/MAY/2018
     Route: 042
     Dates: start: 20180423
  6. VESIKUR [Concomitant]
     Active Substance: SOLIFENACIN SUCCINATE
  7. COVID?19 VACCINE [Concomitant]
     Indication: COVID-19 PROPHYLAXIS
     Dates: start: 20210614, end: 20210614

REACTIONS (23)
  - Dyspnoea [Not Recovered/Not Resolved]
  - Pain in extremity [Not Recovered/Not Resolved]
  - Influenza like illness [Unknown]
  - Fatigue [Recovered/Resolved]
  - Swelling [Not Recovered/Not Resolved]
  - Pollakiuria [Recovered/Resolved]
  - Throat irritation [Recovered/Resolved]
  - Influenza [Recovered/Resolved]
  - Fatigue [Recovered/Resolved]
  - Multiple sclerosis [Recovered/Resolved]
  - Oedema [Not Recovered/Not Resolved]
  - Cough [Recovered/Resolved]
  - Oropharyngeal pain [Recovered/Resolved]
  - Myalgia [Recovered/Resolved]
  - Pruritus [Recovered/Resolved]
  - Gait disturbance [Recovered/Resolved]
  - Taste disorder [Recovered/Resolved]
  - Stress [Recovered/Resolved]
  - Nasopharyngitis [Recovered/Resolved]
  - Micturition urgency [Recovered/Resolved]
  - Drug ineffective [Unknown]
  - Irritability [Not Recovered/Not Resolved]
  - Mood altered [Not Recovered/Not Resolved]

NARRATIVE: CASE EVENT DATE: 20180423
